FAERS Safety Report 8518244-6 (Version None)
Quarter: 2012Q3

REPORT INFORMATION
  Report Type: 
  Country: None (occurrence: None)
  Receive Date: 20120712
  Receipt Date: 20120712
  Transmission Date: 20120928
  Serious: Yes (Other)
  Sender: FDA-Public Use
  Company Number: None

PATIENT
  Age: 63 Year
  Sex: Male

DRUGS (1)
  1. ENBREL [Suspect]
     Indication: RHEUMATOID ARTHRITIS
     Dosage: 50MG ONCE WEEKLY SUBCUTANEOUS
     Route: 058
     Dates: start: 20120620

REACTIONS (2)
  - DIZZINESS [None]
  - AMNESIA [None]
